FAERS Safety Report 7296062-7 (Version None)
Quarter: 2011Q1

REPORT INFORMATION
  Report Type: 
  Country: None (occurrence: None)
  Receive Date: 20110211
  Receipt Date: 20110211
  Transmission Date: 20110831
  Serious: No
  Sender: FDA-Public Use
  Company Number: None

PATIENT
  Sex: Female
  Weight: 92.7 kg

DRUGS (1)
  1. SIMPONI [Suspect]
     Indication: MULTIPLE SCLEROSIS
     Dosage: INJECT 50MG MONTHLY SUB-Q
     Route: 058
     Dates: start: 20100901, end: 20101201

REACTIONS (6)
  - PYREXIA [None]
  - URTICARIA [None]
  - DYSPNOEA [None]
  - DRUG DOSE OMISSION [None]
  - PRURITUS GENERALISED [None]
  - SWELLING FACE [None]
